FAERS Safety Report 8316423-4 (Version None)
Quarter: 2012Q2

REPORT INFORMATION
  Report Type: 
  Country: None (occurrence: None)
  Receive Date: 20120425
  Receipt Date: 20120425
  Transmission Date: 20120825
  Serious: Yes (Hospitalization, Other)
  Sender: FDA-Public Use
  Company Number: None

PATIENT
  Sex: Male
  Weight: 81.6475 kg

DRUGS (1)
  1. DEPO-MEDROL [Suspect]
     Dosage: ONCE IM
     Route: 030
     Dates: start: 20120121

REACTIONS (3)
  - CONDITION AGGRAVATED [None]
  - HEADACHE [None]
  - INJECTION SITE RASH [None]
